FAERS Safety Report 23411638 (Version 1)
Quarter: 2024Q1

REPORT INFORMATION
  Report Type: Spontaneous
  Country: GB (occurrence: GB)
  Receive Date: 20240117
  Receipt Date: 20240117
  Transmission Date: 20240409
  Serious: Yes (Life-Threatening)
  Sender: FDA-Public Use
  Company Number: None

PATIENT
  Age: 43 Year
  Sex: Male
  Weight: 105 kg

DRUGS (4)
  1. BUSPIRONE [Suspect]
     Active Substance: BUSPIRONE HYDROCHLORIDE
     Indication: Anxiety
     Dosage: 10 MILLIGRAM, TID (10MG TDS;)
     Route: 065
     Dates: start: 202009
  2. LOFEPRAMINE [Suspect]
     Active Substance: LOFEPRAMINE
     Indication: Depression
     Dosage: 70 MILLIGRAM, TID (70MG TDS;)
     Route: 065
     Dates: start: 201806
  3. MORPHINE [Suspect]
     Active Substance: MORPHINE
     Indication: Pain
     Dosage: 20 MILLIGRAM, BID (25MG BD - REDUCED TO 20MG BD;)
     Route: 065
     Dates: start: 202102
  4. PREGABALIN [Suspect]
     Active Substance: PREGABALIN
     Indication: Pain
     Dosage: 300 MILLIGRAM, BID (300MG BD;)
     Route: 065
     Dates: start: 2015

REACTIONS (1)
  - Respiratory depression [Not Recovered/Not Resolved]
